FAERS Safety Report 18721050 (Version 2)
Quarter: 2021Q1

REPORT INFORMATION
  Report Type: Spontaneous
  Country: US (occurrence: US)
  Receive Date: 20210108
  Receipt Date: 20210121
  Transmission Date: 20210419
  Serious: Yes (Other)
  Sender: FDA-Public Use
  Company Number: US-BAXTER-2021BAX000345

PATIENT
  Age: 69 Year
  Sex: Female

DRUGS (8)
  1. DOXIL [Suspect]
     Active Substance: DOXORUBICIN HYDROCHLORIDE
     Indication: ACUTE KIDNEY INJURY
     Dosage: SYSTEMIC
     Route: 065
  2. DEXAMETHASONE. [Suspect]
     Active Substance: DEXAMETHASONE
     Indication: ACUTE KIDNEY INJURY
     Route: 065
  3. METHOTREXATE. [Suspect]
     Active Substance: METHOTREXATE
     Indication: CUTANEOUS T-CELL LYMPHOMA
     Route: 065
  4. CYTARABINE. [Suspect]
     Active Substance: CYTARABINE
     Indication: CUTANEOUS T-CELL LYMPHOMA
     Route: 065
  5. DOXIL [Suspect]
     Active Substance: DOXORUBICIN HYDROCHLORIDE
     Indication: CUTANEOUS T-CELL LYMPHOMA
     Route: 037
  6. CYTARABINE. [Suspect]
     Active Substance: CYTARABINE
     Indication: ACUTE KIDNEY INJURY
  7. METHOTREXATE. [Suspect]
     Active Substance: METHOTREXATE
     Indication: ACUTE KIDNEY INJURY
  8. DEXAMETHASONE. [Suspect]
     Active Substance: DEXAMETHASONE
     Indication: CUTANEOUS T-CELL LYMPHOMA

REACTIONS (5)
  - Febrile neutropenia [Recovered/Resolved]
  - Shock [Recovered/Resolved]
  - Gastrointestinal haemorrhage [Recovered/Resolved]
  - Incorrect route of product administration [Unknown]
  - Mucosal inflammation [Recovered/Resolved]
